FAERS Safety Report 8954876 (Version 1)
Quarter: 2012Q4

REPORT INFORMATION
  Report Type: Spontaneous
  Country: US (occurrence: None)
  Receive Date: 20121130
  Receipt Date: 20121130
  Transmission Date: 20130627
  Serious: Yes (Other)
  Sender: FDA-Public Use
  Company Number: 2012P1065628

PATIENT
  Age: 25 Week
  Sex: Male
  Weight: .74 kg

DRUGS (4)
  1. AMPICILLIN [Suspect]
     Indication: PREMATURE DELIVERY
  2. GENTAMICIN [Suspect]
  3. VANCOMYCIN (NO PREF. NAME) [Suspect]
  4. CEFOTAXIME [Suspect]

REACTIONS (4)
  - Necrotising colitis [None]
  - Sepsis [None]
  - Serratia test positive [None]
  - Blood culture positive [None]
